FAERS Safety Report 5294381-7 (Version None)
Quarter: 2007Q2

REPORT INFORMATION
  Report Type: 
  Country: None (occurrence: None)
  Receive Date: 20070412
  Receipt Date: 20070329
  Transmission Date: 20071010
  Serious: Yes (Other)
  Sender: FDA-Public Use
  Company Number: PHEH2006US09862

PATIENT
  Sex: Male

DRUGS (4)
  1. FORADIL [Suspect]
     Indication: ASTHMA
     Dosage: 1 PUFF, BID
  2. ASMANEX TWISTHALER [Concomitant]
  3. SINGULAIR [Concomitant]
  4. ATENOLOL [Concomitant]

REACTIONS (2)
  - ATRIAL FIBRILLATION [None]
  - HEART RATE IRREGULAR [None]
